FAERS Safety Report 25471990 (Version 1)
Quarter: 2025Q2

REPORT INFORMATION
  Report Type: Other
  Country: GB (occurrence: GB)
  Receive Date: 20250624
  Receipt Date: 20250624
  Transmission Date: 20250716
  Serious: Yes (Other)
  Sender: MACLEODS
  Company Number: None

PATIENT

DRUGS (1)
  1. TAMSULOSIN [Suspect]
     Active Substance: TAMSULOSIN
     Indication: Prostatic disorder
     Dosage: 400MG DAILY
     Route: 065
     Dates: start: 20220315

REACTIONS (2)
  - Medication error [Unknown]
  - Visual impairment [Not Recovered/Not Resolved]
